FAERS Safety Report 19078407 (Version 1)
Quarter: 2021Q1

REPORT INFORMATION
  Report Type: Spontaneous
  Country: US (occurrence: US)
  Receive Date: 20210331
  Receipt Date: 20210331
  Transmission Date: 20210420
  Serious: Yes (Hospitalization, Disabling)
  Sender: FDA-Public Use
  Company Number: None

PATIENT
  Age: 40 Year
  Sex: Female
  Weight: 57.6 kg

DRUGS (1)
  1. XEOMIN [Suspect]
     Active Substance: INCOBOTULINUMTOXINA
     Indication: SKIN WRINKLING
     Dosage: ?          QUANTITY:1 INJECTION(S);OTHER FREQUENCY:ONCE;OTHER ROUTE:BOTOX? INJECTED AROUND FACE?
     Dates: start: 20210326, end: 20210326

REACTIONS (7)
  - Syncope [None]
  - Nausea [None]
  - Fall [None]
  - Facial bones fracture [None]
  - Tooth fracture [None]
  - Tooth disorder [None]
  - Hyperhidrosis [None]

NARRATIVE: CASE EVENT DATE: 20210326
